FAERS Safety Report 8529956-2 (Version None)
Quarter: 2012Q3

REPORT INFORMATION
  Report Type: 
  Country: None (occurrence: None)
  Receive Date: 20120723
  Receipt Date: 20120712
  Transmission Date: 20120928
  Serious: Yes (Other)
  Sender: FDA-Public Use
  Company Number: JP-BRISTOL-MYERS SQUIBB COMPANY-16764722

PATIENT

DRUGS (1)
  1. BARACLUDE [Suspect]
     Indication: PROPHYLAXIS
     Route: 048
     Dates: start: 20120701

REACTIONS (1)
  - GENERALISED OEDEMA [None]
